FAERS Safety Report 9458650 (Version 3)
Quarter: 2013Q4

REPORT INFORMATION
  Report Type: Report from Study
  Country: US (occurrence: US)
  Receive Date: 20130814
  Receipt Date: 20131018
  Transmission Date: 20140711
  Serious: Yes (Other)
  Sender: FDA-Public Use
  Company Number: US-JNJFOC-20130804430

PATIENT
  Sex: Female
  Weight: 49.9 kg

DRUGS (5)
  1. REMICADE [Suspect]
     Indication: CROHN^S DISEASE
     Dosage: 300 (3 VIALS/6 WEEKS EVERY)
     Route: 042
     Dates: start: 2008
  2. REMICADE [Suspect]
     Indication: CROHN^S DISEASE
     Route: 042
     Dates: start: 2009, end: 2013
  3. PENTASA [Concomitant]
     Indication: CROHN^S DISEASE
     Route: 065
  4. VITAMIN B12 [Concomitant]
     Route: 065
  5. VITAMIN D [Concomitant]
     Route: 065

REACTIONS (1)
  - Lupus-like syndrome [Not Recovered/Not Resolved]
